FAERS Safety Report 8874250 (Version 3)
Quarter: 2013Q1

REPORT INFORMATION
  Report Type: Spontaneous
  Country: DE (occurrence: DE)
  Receive Date: 20121030
  Receipt Date: 20130115
  Transmission Date: 20140127
  Serious: Yes (Other)
  Sender: FDA-Public Use
  Company Number: DE-PFIZER INC-2012264732

PATIENT
  Age: 69 Year
  Sex: Male
  Weight: 79.82 kg

DRUGS (6)
  1. LYRICA [Suspect]
     Indication: ANXIETY
     Dosage: 4 TIMES 50 MG/D
     Route: 048
     Dates: start: 2011, end: 20120601
  2. LYRICA [Suspect]
     Indication: NEUROPATHY PERIPHERAL
  3. LYRICA [Suspect]
     Indication: DEPRESSION
  4. JATROSOM [Concomitant]
     Dosage: 10 MG, 1X/DAY
     Dates: start: 20110701
  5. SEROQUEL [Concomitant]
     Dosage: 200 MG, 1X/DAY
     Dates: start: 20110524, end: 20120201
  6. SEROQUEL [Concomitant]
     Dosage: 100 MG, 1X/DAY
     Dates: start: 20120201, end: 20120501

REACTIONS (9)
  - Withdrawal syndrome [Not Recovered/Not Resolved]
  - Dizziness [Not Recovered/Not Resolved]
  - Fall [Not Recovered/Not Resolved]
  - Tremor [Not Recovered/Not Resolved]
  - Muscle spasms [Not Recovered/Not Resolved]
  - Depression [Not Recovered/Not Resolved]
  - Sleep disorder [Not Recovered/Not Resolved]
  - Off label use [Unknown]
  - Drug ineffective for unapproved indication [Unknown]
